FAERS Safety Report 8447179-2 (Version None)
Quarter: 2012Q2

REPORT INFORMATION
  Report Type: 
  Country: None (occurrence: None)
  Receive Date: 20120619
  Receipt Date: 20120614
  Transmission Date: 20120825
  Serious: No
  Sender: FDA-Public Use
  Company Number: US-PFIZER INC-2012145068

PATIENT
  Sex: Male
  Weight: 81.633 kg

DRUGS (5)
  1. TOVIAZ [Suspect]
     Indication: URINARY INCONTINENCE
     Dosage: 8 MG, DAILY
     Dates: start: 20120501
  2. DONEPEZIL HYDROCHLORIDE [Concomitant]
     Indication: MEMORY IMPAIRMENT
     Dosage: 5 MG, DAILY
  3. TRIAMTERENE AND HYDROCHLOROTHIAZIDE [Concomitant]
     Indication: DIURETIC THERAPY
     Dosage: 37.5/25  MG, MONDAY, WEDNESDAY AND FRIDAY
  4. FLUTICASONE [Concomitant]
     Indication: HYPERSENSITIVITY
     Dosage: 1 SPRAY IN EACH NOSTRIL, DAILY
     Route: 045
  5. TAMSULOSIN [Concomitant]
     Indication: URINARY INCONTINENCE
     Dosage: 0.4 MG, DAILY

REACTIONS (1)
  - CONSTIPATION [None]
